FAERS Safety Report 9795864 (Version 1)
Quarter: 2014Q1

REPORT INFORMATION
  Report Type: Spontaneous
  Country: US (occurrence: US)
  Receive Date: 20140103
  Receipt Date: 20140103
  Transmission Date: 20141002
  Serious: Yes (Death, Other)
  Sender: FDA-Public Use
  Company Number: US-UCBSA-107586

PATIENT
  Age: 19 Year
  Sex: Male

DRUGS (3)
  1. ALPRAZOLAM [Suspect]
     Dosage: UNKNOWN DOSE
  2. METHADONE [Suspect]
  3. DIPHENHYDRAMINE [Suspect]

REACTIONS (1)
  - Drug abuse [Fatal]
